FAERS Safety Report 5423911-7 (Version None)
Quarter: 2007Q3

REPORT INFORMATION
  Report Type: 
  Country: None (occurrence: None)
  Receive Date: 20070727
  Receipt Date: 20070629
  Transmission Date: 20080115
  Serious: No
  Sender: FDA-Public Use
  Company Number: 265067

PATIENT
  Age: 79 Year
  Sex: Female

DRUGS (1)
  1. LEVEMIR [Suspect]
     Indication: INSULIN-REQUIRING TYPE II DIABETES MELLITUS
     Dosage: 22 IU, QD, SUBCUTANEOUS, 26 IU, QD, SUBCUTANEOUS, 29, IU, QD, SUBCUTANEOUS
     Route: 058
     Dates: start: 20070301

REACTIONS (2)
  - BLOOD GLUCOSE INCREASED [None]
  - INJECTION SITE BRUISING [None]
